FAERS Safety Report 21047180 (Version 1)
Quarter: 2022Q3

REPORT INFORMATION
  Report Type: Report from Study
  Country: US (occurrence: None)
  Receive Date: 20220706
  Receipt Date: 20220706
  Transmission Date: 20221026
  Serious: Yes (Death)
  Sender: FDA-Public Use
  Company Number: 2022A243967

PATIENT
  Sex: Male

DRUGS (1)
  1. LYNPARZA [Suspect]
     Active Substance: OLAPARIB
     Dosage: TAKE 2 TABLETS BY MOUTH TWICE A DAY ON DAYS 1-7 EVERY 3 WEEKS
     Route: 048

REACTIONS (1)
  - Death [Fatal]
